FAERS Safety Report 18931268 (Version 1)
Quarter: 2021Q1

REPORT INFORMATION
  Report Type: Spontaneous
  Country: FR (occurrence: FR)
  Receive Date: 20210223
  Receipt Date: 20210223
  Transmission Date: 20210420
  Serious: No
  Sender: FDA-Public Use
  Company Number: FR-JAZZ-2020-FR-017364

PATIENT

DRUGS (2)
  1. WAKIX [Concomitant]
     Active Substance: PITOLISANT HYDROCHLORIDE
  2. XYREM [Suspect]
     Active Substance: SODIUM OXYBATE
     Indication: PRODUCT USED FOR UNKNOWN INDICATION
     Dosage: 7.5 GRAM
     Route: 048

REACTIONS (1)
  - Stomatitis [Unknown]
